FAERS Safety Report 5777314-6 (Version None)
Quarter: 2008Q2

REPORT INFORMATION
  Report Type: 
  Country: None (occurrence: None)
  Receive Date: 20080618
  Receipt Date: 20080606
  Transmission Date: 20081010
  Serious: Yes (Hospitalization, Other)
  Sender: FDA-Public Use
  Company Number: US-BAYER-200811709BCC

PATIENT
  Age: 75 Year
  Sex: Female
  Weight: 55 kg

DRUGS (6)
  1. ASPIRIN [Suspect]
     Indication: ISCHAEMIC HEART DISEASE PROPHYLAXIS
     Dosage: TOTAL DAILY DOSE: 325 MG  UNIT DOSE: 325 MG
     Route: 048
     Dates: start: 20020101, end: 20080101
  2. LEVOTHYROXINE SODIUM [Concomitant]
  3. ATENOLOL [Concomitant]
  4. VASOTEC [Concomitant]
  5. PROTONIX [Concomitant]
  6. LIPITOR [Concomitant]
     Route: 048

REACTIONS (7)
  - ANAEMIA [None]
  - ASTHENIA [None]
  - GASTRIC HAEMORRHAGE [None]
  - GASTROINTESTINAL HAEMORRHAGE [None]
  - HAEMATOCRIT DECREASED [None]
  - INTESTINAL HAEMORRHAGE [None]
  - LOSS OF CONSCIOUSNESS [None]
